FAERS Safety Report 8838262 (Version 1)
Quarter: 2012Q4

REPORT INFORMATION
  Report Type: 
  Country: US (occurrence: US)
  Receive Date: 20121012
  Receipt Date: 20121012
  Transmission Date: 20130627
  Serious: Yes (Other)
  Sender: FDA-Public Use
  Company Number: US-ROCHE-739124

PATIENT
  Age: 38 Year
  Sex: Female
  Weight: 113.4 kg

DRUGS (6)
  1. ACCUTANE [Suspect]
     Indication: ACNE CYSTIC
     Route: 065
  2. ACCUTANE [Suspect]
     Route: 065
  3. ACCUTANE [Suspect]
     Route: 065
     Dates: start: 19940101, end: 19960101
  4. ACCUTANE [Suspect]
     Route: 065
  5. TETRACYCLINE [Concomitant]
  6. DARVOCET [Concomitant]

REACTIONS (7)
  - Colitis ulcerative [Unknown]
  - Gastrointestinal injury [Unknown]
  - Depression [Unknown]
  - Inflammatory bowel disease [Unknown]
  - Irritable bowel syndrome [Unknown]
  - Arthralgia [Unknown]
  - Large intestine polyp [Unknown]
